FAERS Safety Report 24932741 (Version 2)
Quarter: 2025Q1

REPORT INFORMATION
  Report Type: Spontaneous
  Country: FR (occurrence: FR)
  Receive Date: 20250205
  Receipt Date: 20250312
  Transmission Date: 20250409
  Serious: Yes (Hospitalization, Disabling, Other)
  Sender: STRIDES
  Company Number: None

PATIENT
  Age: 50 Year
  Sex: Male

DRUGS (3)
  1. PREDNISOLONE [Suspect]
     Active Substance: PREDNISOLONE
     Indication: Otitis externa
     Route: 048
  2. AMOXICILLIN [Suspect]
     Active Substance: AMOXICILLIN
     Indication: Otitis externa
     Route: 065
  3. AMOXICILLIN\CLAVULANIC ACID [Concomitant]
     Active Substance: AMOXICILLIN\CLAVULANIC ACID
     Indication: Otitis externa
     Route: 065

REACTIONS (11)
  - Deafness [Not Recovered/Not Resolved]
  - Osteolysis [Recovering/Resolving]
  - Mastoiditis [Recovering/Resolving]
  - Pulmonary tuberculosis [Recovering/Resolving]
  - Bone tuberculosis [Recovering/Resolving]
  - Otitis externa [Recovering/Resolving]
  - Condition aggravated [Recovering/Resolving]
  - Pseudomonas infection [Unknown]
  - Tympanic membrane perforation [Unknown]
  - Drug ineffective [Unknown]
  - Off label use [Unknown]
